FAERS Safety Report 7347410-0 (Version None)
Quarter: 2011Q1

REPORT INFORMATION
  Report Type: 
  Country: None (occurrence: None)
  Receive Date: 20110311
  Receipt Date: 20110303
  Transmission Date: 20110831
  Serious: Yes (Other)
  Sender: FDA-Public Use
  Company Number: JP-ROCHE-764365

PATIENT
  Sex: Male

DRUGS (1)
  1. TAMIFLU [Suspect]
     Dosage: REPORTED AS: TAMIFLU DRY SYRUP 3%
     Route: 048
     Dates: start: 20110212, end: 20110216

REACTIONS (2)
  - PORIOMANIA [None]
  - ABNORMAL BEHAVIOUR [None]
